FAERS Safety Report 19990232 (Version 2)
Quarter: 2021Q4

REPORT INFORMATION
  Report Type: Report from Study
  Country: MX (occurrence: MX)
  Receive Date: 20211025
  Receipt Date: 20211029
  Transmission Date: 20220303
  Serious: Yes (Death)
  Sender: FDA-Public Use
  Company Number: NVSC2020MX259815

PATIENT
  Age: 99 Year
  Sex: Male

DRUGS (8)
  1. ENTRESTO [Suspect]
     Active Substance: SACUBITRIL\VALSARTAN
     Indication: Cardiac disorder
     Dosage: 1 DF, QD (100 MG)
     Route: 048
     Dates: start: 1990
  2. ENTRESTO [Suspect]
     Active Substance: SACUBITRIL\VALSARTAN
     Indication: Hypertension
     Dosage: 0.5 DF, QD (50 MG)
     Route: 048
     Dates: start: 20200908
  3. ENTRESTO [Suspect]
     Active Substance: SACUBITRIL\VALSARTAN
     Dosage: 1 DF, QD (100 MG)
     Route: 048
     Dates: start: 20210930
  4. DIOVAN [Suspect]
     Active Substance: VALSARTAN
     Indication: Hypertension
     Dosage: 1 DF, BID (80 MG)
     Route: 048
     Dates: start: 1990
  5. DIOVAN [Suspect]
     Active Substance: VALSARTAN
     Dosage: 0.5 DF, BID (320 MG)
     Route: 065
     Dates: start: 1990
  6. DIOVAN [Suspect]
     Active Substance: VALSARTAN
     Dosage: 1 DF, QD (320 MG)
     Route: 048
     Dates: start: 1990, end: 20210915
  7. DIOVAN [Suspect]
     Active Substance: VALSARTAN
     Dosage: 0.5 DF, QD (320 MG)
     Route: 048
     Dates: start: 20210915
  8. DIOVAN [Suspect]
     Active Substance: VALSARTAN
     Dosage: 0.5 DF, QD (320 MG)
     Route: 048
     Dates: start: 20210930

REACTIONS (4)
  - Infarction [Fatal]
  - Wrong technique in product usage process [Unknown]
  - Inappropriate schedule of product administration [Unknown]
  - Product use in unapproved indication [Unknown]

NARRATIVE: CASE EVENT DATE: 20200908
